FAERS Safety Report 7462460-1 (Version None)
Quarter: 2011Q2

REPORT INFORMATION
  Report Type: 
  Country: None (occurrence: None)
  Receive Date: 20110506
  Receipt Date: 20110426
  Transmission Date: 20111010
  Serious: Yes (Death, Hospitalization, Other)
  Sender: FDA-Public Use
  Company Number: JP-JNJFOC-20110406454

PATIENT
  Sex: Male

DRUGS (9)
  1. CIPROFLOXACIN [Suspect]
     Indication: CHRONIC OBSTRUCTIVE PULMONARY DISEASE
     Route: 041
  2. LEVOFLOXACIN [Suspect]
     Route: 042
  3. HOKUNALIN TAPE [Concomitant]
     Indication: CHRONIC OBSTRUCTIVE PULMONARY DISEASE
     Route: 061
  4. LEVOFLOXACIN [Suspect]
     Route: 042
  5. BISOLVON [Concomitant]
     Indication: CHRONIC OBSTRUCTIVE PULMONARY DISEASE
     Route: 025
  6. MEPTIN [Concomitant]
     Indication: CHRONIC OBSTRUCTIVE PULMONARY DISEASE
     Route: 025
  7. LEVOFLOXACIN [Suspect]
     Indication: PNEUMONIA
     Route: 042
  8. LEVOFLOXACIN [Suspect]
     Indication: CHRONIC OBSTRUCTIVE PULMONARY DISEASE
     Route: 042
  9. SPIRIVA [Concomitant]
     Indication: CHRONIC OBSTRUCTIVE PULMONARY DISEASE
     Route: 025

REACTIONS (8)
  - HEPATITIS FULMINANT [None]
  - BLOOD PRESSURE DECREASED [None]
  - PLATELET COUNT DECREASED [None]
  - INTERSTITIAL LUNG DISEASE [None]
  - PRURITUS [None]
  - PULMONARY HYPERTENSION [None]
  - HAEMOGLOBIN DECREASED [None]
  - HEPATIC CONGESTION [None]
